FAERS Safety Report 7490288-5 (Version None)
Quarter: 2011Q2

REPORT INFORMATION
  Report Type: 
  Country: None (occurrence: None)
  Receive Date: 20110519
  Receipt Date: 20100721
  Transmission Date: 20111010
  Serious: No
  Sender: FDA-Public Use
  Company Number: US-BRISTOL-MYERS SQUIBB COMPANY-15202799

PATIENT
  Age: 56 Year
  Sex: Male

DRUGS (5)
  1. BARACLUDE [Suspect]
     Dates: start: 20100720
  2. FLOMAX [Concomitant]
  3. DIAZEPAM [Concomitant]
  4. HYDROMORPHONE HCL [Concomitant]
  5. HYDROCODONE [Concomitant]

REACTIONS (5)
  - HEADACHE [None]
  - ASTHENIA [None]
  - CHILLS [None]
  - IMPATIENCE [None]
  - PYREXIA [None]
